FAERS Safety Report 5190079-4 (Version None)
Quarter: 2006Q4

REPORT INFORMATION
  Report Type: 
  Country: None (occurrence: None)
  Receive Date: 20061222
  Receipt Date: 20061212
  Transmission Date: 20070319
  Serious: Yes (Death)
  Sender: FDA-Public Use
  Company Number: DE-AVENTIS-200613634DE

PATIENT
  Age: 55 Year
  Sex: Male
  Weight: 58 kg

DRUGS (2)
  1. CLEXANE [Suspect]
     Indication: PROPHYLAXIS
     Route: 058
     Dates: start: 20061109, end: 20061122
  2. ANTIDEPRESSANTS [Concomitant]
     Indication: CYCLOTHYMIC DISORDER
     Dosage: DOSE: NOT REPORTED

REACTIONS (7)
  - BACTERAEMIA [None]
  - DRUG INEFFECTIVE [None]
  - MULTI-ORGAN FAILURE [None]
  - PULMONARY EMBOLISM [None]
  - SEPSIS [None]
  - SEPTIC EMBOLUS [None]
  - SHOCK [None]
